FAERS Safety Report 5060442-0 (Version None)
Quarter: 2006Q2

REPORT INFORMATION
  Report Type: 
  Country: None (occurrence: None)
  Receive Date: 20060630
  Receipt Date: 20060328
  Transmission Date: 20061013
  Serious: Yes (Other)
  Sender: FDA-Public Use
  Company Number: A03200601832

PATIENT
  Age: 84 Year
  Sex: Female

DRUGS (1)
  1. AMBIEN [Suspect]
     Indication: INSOMNIA
     Dosage: 12.5 MG ONCE ORAL
     Route: 048

REACTIONS (3)
  - EYE DISORDER [None]
  - HALLUCINATIONS, MIXED [None]
  - SLEEP WALKING [None]
